FAERS Safety Report 4577753-5 (Version None)
Quarter: 2005Q1

REPORT INFORMATION
  Report Type: 
  Country: None (occurrence: None)
  Receive Date: 20050209
  Receipt Date: 20050126
  Transmission Date: 20050727
  Serious: Yes (Death, Hospitalization)
  Sender: FDA-Public Use
  Company Number: 2004AL000559

PATIENT
  Age: 48 Year
  Sex: Female

DRUGS (1)
  1. KADIAN [Suspect]

REACTIONS (10)
  - ANOXIC ENCEPHALOPATHY [None]
  - APNOEA [None]
  - BLOOD PRESSURE INCREASED [None]
  - BRAIN DEATH [None]
  - CARDIO-RESPIRATORY ARREST [None]
  - COMA [None]
  - COMPLETED SUICIDE [None]
  - DRUG TOXICITY [None]
  - MYOCLONUS [None]
  - VENTRICULAR FIBRILLATION [None]
